FAERS Safety Report 6646801-0 (Version None)
Quarter: 2010Q1

REPORT INFORMATION
  Report Type: 
  Country: None (occurrence: None)
  Receive Date: 20100323
  Receipt Date: 20100319
  Transmission Date: 20100710
  Serious: Yes (Hospitalization, Other)
  Sender: FDA-Public Use
  Company Number: US-MERCK-0805USA00718

PATIENT
  Age: 52 Year
  Sex: Female
  Weight: 83 kg

DRUGS (6)
  1. FOSAMAX [Suspect]
     Indication: OSTEOPENIA
     Route: 048
     Dates: start: 20041101, end: 20070104
  2. [THERAPY UNSPECIFIED] [Concomitant]
     Route: 065
     Dates: start: 19870401
  3. FOSAMAX PLUS D [Suspect]
     Indication: OSTEOPENIA
     Route: 065
  4. LAMICTAL CD [Concomitant]
     Route: 065
     Dates: start: 20040101
  5. AMBIEN [Concomitant]
     Route: 065
     Dates: start: 20040101
  6. LUNESTA [Concomitant]
     Route: 065
     Dates: start: 20040101

REACTIONS (15)
  - ABSCESS ORAL [None]
  - DENTAL CARIES [None]
  - HEADACHE [None]
  - HYPERTONIC BLADDER [None]
  - HYPOTHYROIDISM [None]
  - IMPAIRED HEALING [None]
  - LOWER LIMB FRACTURE [None]
  - MENOPAUSAL SYMPTOMS [None]
  - ORAL CAVITY FISTULA [None]
  - ORAL INFECTION [None]
  - OSTEOMYELITIS [None]
  - OSTEONECROSIS [None]
  - RECTOCELE [None]
  - TEMPOROMANDIBULAR JOINT SYNDROME [None]
  - TOOTH FRACTURE [None]
